FAERS Safety Report 26004483 (Version 1)
Quarter: 2025Q4

REPORT INFORMATION
  Report Type: Spontaneous
  Country: IN (occurrence: None)
  Receive Date: 20251106
  Receipt Date: 20251106
  Transmission Date: 20260118
  Serious: Yes (Other)
  Sender: ENCUBE ETHICALS PVT. LTD.
  Company Number: IN-Encube-002570

PATIENT
  Age: 4 Decade
  Sex: Female

DRUGS (4)
  1. TRETINOIN [Suspect]
     Active Substance: TRETINOIN
     Indication: Acute promyelocytic leukaemia
     Route: 048
  2. ARSENIC TRIOXIDE [Concomitant]
     Active Substance: ARSENIC TRIOXIDE
     Indication: Acute promyelocytic leukaemia
  3. TRETINOIN [Suspect]
     Active Substance: TRETINOIN
     Indication: Acute promyelocytic leukaemia
     Dosage: REINTRODUCED WITH A HALF DOSE (DOSE REDUCED) FOR 5 DAYS
     Route: 048
  4. TRETINOIN [Suspect]
     Active Substance: TRETINOIN
     Indication: Acute promyelocytic leukaemia
     Dosage: LATER ESCALATED TO THE FULL THERAPEUTIC DOSE
     Route: 048

REACTIONS (3)
  - Serous retinal detachment [Recovered/Resolved]
  - Off label use [Unknown]
  - Differentiation syndrome [Recovered/Resolved]
